FAERS Safety Report 6563603-4 (Version None)
Quarter: 2010Q1

REPORT INFORMATION
  Report Type: 
  Country: None (occurrence: None)
  Receive Date: 20100130
  Receipt Date: 20091222
  Transmission Date: 20100710
  Serious: No
  Sender: FDA-Public Use
  Company Number: US-ABBOTT-09P-163-0615741-00

PATIENT
  Sex: Female
  Weight: 110.32 kg

DRUGS (2)
  1. HUMIRA [Suspect]
     Indication: PSORIASIS
     Dates: start: 20091007, end: 20091122
  2. CELEXA [Concomitant]
     Indication: ANXIETY

REACTIONS (7)
  - ALOPECIA [None]
  - ASTHENIA [None]
  - COUGH [None]
  - DYSPHONIA [None]
  - HYPOAESTHESIA [None]
  - NASOPHARYNGITIS [None]
  - NAUSEA [None]
